FAERS Safety Report 10541675 (Version 2)
Quarter: 2014Q4

REPORT INFORMATION
  Report Type: Spontaneous
  Country: US (occurrence: US)
  Receive Date: 20141024
  Receipt Date: 20141024
  Transmission Date: 20150529
  Serious: No
  Sender: FDA-Public Use
  Company Number: US-ALLERGAN-1402792US

PATIENT
  Sex: Female
  Weight: 72.56 kg

DRUGS (1)
  1. ALPHAGAN P [Suspect]
     Active Substance: BRIMONIDINE TARTRATE
     Indication: GLAUCOMA
     Dosage: 1 GTT, TWICE A DAY
     Route: 047
     Dates: start: 2009, end: 2009

REACTIONS (2)
  - Chest discomfort [Recovered/Resolved]
  - Oropharyngeal discomfort [Unknown]
